FAERS Safety Report 16890991 (Version 1)
Quarter: 2019Q4

REPORT INFORMATION
  Report Type: Report from Study
  Country: US (occurrence: US)
  Receive Date: 20191007
  Receipt Date: 20191007
  Transmission Date: 20200122
  Serious: No
  Sender: FDA-Public Use
  Company Number: US-EMD SERONO-9109233

PATIENT
  Age: 49 Year
  Sex: Female

DRUGS (2)
  1. MAVENCLAD [Suspect]
     Active Substance: CLADRIBINE
     Indication: MULTIPLE SCLEROSIS
     Dosage: FIRST COURSE (MONTH ONE): ONE TABLET (EACH OF 10 MG) ON DAY 1 TO 4
     Route: 048
     Dates: start: 20190710
  2. MAVENCLAD [Suspect]
     Active Substance: CLADRIBINE
     Dosage: MONTH TWO: TOOK 10 MG TABLET ON 01 AUG 2019 AND 02 AUG 2019
     Route: 048
     Dates: start: 20190801

REACTIONS (2)
  - Accidental overdose [Unknown]
  - Intentional product misuse [Unknown]

NARRATIVE: CASE EVENT DATE: 20190801
